FAERS Safety Report 12840522 (Version 1)
Quarter: 2016Q4

REPORT INFORMATION
  Report Type: Spontaneous
  Country: US (occurrence: US)
  Receive Date: 20161012
  Receipt Date: 20161012
  Transmission Date: 20170207
  Serious: No
  Sender: FDA-Public Use
  Company Number: US-SHIRE-US201613587

PATIENT
  Sex: Female

DRUGS (1)
  1. XIIDRA [Suspect]
     Active Substance: LIFITEGRAST
     Indication: DRY EYE
     Dosage: UNK, 2X/DAY:BID (ONCE IN THE MORNING AND AGAIN AT NIGHT)
     Route: 047
     Dates: start: 20160812, end: 20160919

REACTIONS (3)
  - Eye irritation [Unknown]
  - Vision blurred [Unknown]
  - Photophobia [Unknown]

NARRATIVE: CASE EVENT DATE: 20160812
